FAERS Safety Report 8018755-6 (Version None)
Quarter: 2012Q1

REPORT INFORMATION
  Report Type: 
  Country: None (occurrence: None)
  Receive Date: 20120103
  Receipt Date: 20120103
  Transmission Date: 20120608
  Serious: Yes (Hospitalization)
  Sender: FDA-Public Use
  Company Number: None

PATIENT
  Age: 47 Year
  Sex: Male
  Weight: 100 kg

DRUGS (1)
  1. CARBAMAZEPINE [Suspect]
     Dosage: 400MG
     Route: 048

REACTIONS (3)
  - BLISTER [None]
  - SECRETION DISCHARGE [None]
  - RASH MACULO-PAPULAR [None]
